FAERS Safety Report 5530712-8 (Version None)
Quarter: 2007Q4

REPORT INFORMATION
  Report Type: 
  Country: None (occurrence: None)
  Receive Date: 20071128
  Receipt Date: 20071128
  Transmission Date: 20080405
  Serious: Yes (Life-Threatening, Hospitalization, Other)
  Sender: FDA-Public Use
  Company Number: None

PATIENT
  Sex: Female

DRUGS (1)
  1. ELIDEL [Suspect]
     Indication: ROSACEA
     Dosage: DAB BID
     Dates: start: 20040301, end: 20070801

REACTIONS (1)
  - NON-HODGKIN'S LYMPHOMA [None]
